FAERS Safety Report 7455440-3 (Version None)
Quarter: 2011Q2

REPORT INFORMATION
  Report Type: 
  Country: None (occurrence: None)
  Receive Date: 20110503
  Receipt Date: 20110427
  Transmission Date: 20111010
  Serious: Yes (Other)
  Sender: FDA-Public Use
  Company Number: BR-SANOFI-AVENTIS-2011SA026521

PATIENT
  Sex: Female
  Weight: 2.78 kg

DRUGS (2)
  1. CLEXANE SYRINGES [Suspect]
     Route: 063
     Dates: start: 20110402, end: 20110406
  2. CLEXANE SYRINGES [Suspect]
     Indication: THROMBOSIS
     Route: 064
     Dates: end: 20110401

REACTIONS (3)
  - CARDIAC ARREST [None]
  - DRUG EXPOSURE DURING PREGNANCY [None]
  - DRUG EXPOSURE VIA BREAST MILK [None]
